FAERS Safety Report 13516219 (Version 1)
Quarter: 2017Q2

REPORT INFORMATION
  Report Type: Report from Study
  Country: FR (occurrence: FR)
  Receive Date: 20170505
  Receipt Date: 20170505
  Transmission Date: 20170830
  Serious: Yes (Hospitalization)
  Sender: FDA-Public Use
  Company Number: FR-ROCHE-1921986

PATIENT
  Age: 21 Month
  Sex: Female

DRUGS (5)
  1. NUTROPIN AQ [Suspect]
     Active Substance: SOMATROPIN
     Dosage: APPROXIMATELY 2.4 MG. WITHDRAWN IN RESPONSE TO HYPOGLYCAEMIA.
     Route: 058
     Dates: start: 20170322, end: 20170322
  2. NUTROPIN AQ [Suspect]
     Active Substance: SOMATROPIN
     Indication: TURNER^S SYNDROME
     Dosage: DOSE INCREASED
     Route: 058
     Dates: start: 20170203, end: 20170209
  3. NUTROPIN AQ [Suspect]
     Active Substance: SOMATROPIN
     Dosage: RESTARTED
     Route: 058
     Dates: start: 20170401
  4. NUTROPIN AQ [Suspect]
     Active Substance: SOMATROPIN
     Dosage: DOSE INCREASED
     Route: 058
     Dates: start: 20170210, end: 20170322
  5. NUTROPIN AQ [Suspect]
     Active Substance: SOMATROPIN
     Indication: GROWTH RETARDATION
     Route: 058
     Dates: start: 20170127, end: 20170202

REACTIONS (4)
  - Hypoglycaemia [Recovered/Resolved]
  - Accidental overdose [Unknown]
  - Off label use [Unknown]
  - Wrong technique in device usage process [Unknown]

NARRATIVE: CASE EVENT DATE: 20170322
